FAERS Safety Report 7358486-9 (Version None)
Quarter: 2011Q1

REPORT INFORMATION
  Report Type: 
  Country: None (occurrence: None)
  Receive Date: 20110314
  Receipt Date: 20110314
  Transmission Date: 20110831
  Serious: Yes (Hospitalization, Other)
  Sender: FDA-Public Use
  Company Number: None

PATIENT
  Age: 73 Year
  Sex: Female

DRUGS (11)
  1. VICODIN [Concomitant]
  2. OMEPRAZOLE [Concomitant]
  3. CALCIUM ACETATE [Concomitant]
  4. REVLIMID [Suspect]
     Dosage: 50MG DAILY ORALLY
     Route: 048
     Dates: start: 20100801, end: 20101201
  5. FUROSEMIDE [Concomitant]
  6. LISINOPRIL [Concomitant]
  7. DANAZOL [Concomitant]
  8. FOLIC ACID [Concomitant]
  9. PROCRIT [Concomitant]
  10. REVLIMID [Suspect]
     Indication: LEUKAEMIA
     Dosage: REVLIMID 10MG DAILY ORALLY
     Route: 048
     Dates: start: 20071001
  11. REVLIMID [Suspect]
     Indication: LEUKAEMIA
     Dosage: REVLIMID 10MG DAILY ORALLY
     Route: 048
     Dates: start: 20080301

REACTIONS (2)
  - SUBDURAL HAEMORRHAGE [None]
  - RASH [None]
